FAERS Safety Report 6423281-1 (Version None)
Quarter: 2009Q4

REPORT INFORMATION
  Report Type: 
  Country: None (occurrence: None)
  Receive Date: 20091102
  Receipt Date: 20091020
  Transmission Date: 20100525
  Serious: Yes (Hospitalization)
  Sender: FDA-Public Use
  Company Number: AU-ELI_LILLY_AND_COMPANY-AU200910004926

PATIENT
  Sex: Female

DRUGS (2)
  1. BYETTA [Suspect]
     Dosage: 5 UG, UNK
     Route: 058
     Dates: start: 20080101
  2. BYETTA [Suspect]
     Dosage: 10 UG, UNK
     Dates: start: 20080101

REACTIONS (1)
  - PANCREATITIS [None]
